FAERS Safety Report 8624963-3 (Version None)
Quarter: 2012Q3

REPORT INFORMATION
  Report Type: 
  Country: None (occurrence: None)
  Receive Date: 20120827
  Receipt Date: 20120720
  Transmission Date: 20120928
  Serious: No
  Sender: FDA-Public Use
  Company Number: US-BAYER-2012-081931

PATIENT
  Age: 57 Year
  Sex: Female

DRUGS (18)
  1. NAPROXEN SODIUM [Suspect]
     Indication: PRODUCT USED FOR UNKNOWN INDICATION
  2. VALIUM [Concomitant]
     Indication: ANXIETY
     Dosage: 20 MG, BID
     Route: 048
     Dates: start: 20120604
  3. METFORMIN HYDROCHLORIDE [Concomitant]
     Dosage: 200 MG, BID
     Route: 048
     Dates: start: 20120509
  4. FIORICET [Concomitant]
     Indication: MIGRAINE
     Dosage: 1 DF, QID
     Dates: start: 20120604
  5. NEXIUM [Concomitant]
     Indication: GASTROOESOPHAGEAL REFLUX DISEASE
     Dosage: 40 MG, UNK
     Route: 048
     Dates: start: 20120119
  6. NASONEX [Concomitant]
     Dosage: 2 DF, UNK
     Dates: start: 20110119
  7. ZOLOFT [Concomitant]
     Indication: DEPRESSION
     Dosage: 100 MG, BID
     Route: 048
     Dates: start: 20120615
  8. SYNTHROID [Concomitant]
     Indication: HYPOTHYROIDISM
     Dosage: 75 ?G, ONCE
  9. ROBAXIN [Concomitant]
     Indication: SPINAL OSTEOARTHRITIS
     Dosage: 750 MG, TID
     Route: 048
     Dates: start: 20120707
  10. NEURONTIN [Concomitant]
     Indication: NEUROPATHY PERIPHERAL
     Dosage: 800 MG, TID
     Route: 048
     Dates: start: 20120615
  11. ZESTRIL [Concomitant]
     Dosage: 2.5 MG, ONCE
     Route: 048
     Dates: start: 20120509
  12. TRILIPIX [Concomitant]
     Dosage: 135 MG, UNK
     Route: 048
     Dates: start: 20111227
  13. BENTYL [Concomitant]
     Indication: IRRITABLE BOWEL SYNDROME
     Dosage: 20MG, BEFORE MEALS
     Route: 048
     Dates: start: 20110915
  14. LANTUS [Concomitant]
     Indication: DIABETES MELLITUS
     Dosage: 25 U, HS
     Route: 058
     Dates: start: 20111213
  15. ALDACTONE [Concomitant]
     Indication: HYPERTENSION
     Dosage: 100 MG, UNK
     Route: 048
     Dates: start: 20120615
  16. VERAMYST [Concomitant]
     Indication: ANXIETY
     Dosage: 2 DF, UNK
     Route: 045
     Dates: start: 20120607
  17. AMARYL [Concomitant]
     Dosage: UNK DF, UNK
     Route: 048
     Dates: start: 20110520
  18. AVELOX [Concomitant]
     Indication: SINUSITIS
     Dosage: 400 MG, ONCE
     Route: 048
     Dates: start: 20120607

REACTIONS (1)
  - DRUG HYPERSENSITIVITY [None]
